FAERS Safety Report 8708182 (Version 2)
Quarter: 2012Q4

REPORT INFORMATION
  Report Type: 
  Country: US (occurrence: US)
  Receive Date: 20120806
  Receipt Date: 20120907
  Transmission Date: 20130627
  Serious: Yes (Hospitalization, Other)
  Sender: FDA-Public Use
  Company Number: US-JNJFOC-20120800491

PATIENT
  Age: 78 None
  Sex: Female
  Weight: 36.29 kg

DRUGS (11)
  1. REMICADE [Suspect]
     Indication: PSORIATIC ARTHROPATHY
     Route: 042
     Dates: end: 201207
  2. REMICADE [Suspect]
     Indication: PSORIATIC ARTHROPATHY
     Route: 042
     Dates: start: 20081218
  3. REMICADE [Suspect]
     Indication: PSORIATIC ARTHROPATHY
     Route: 042
     Dates: start: 20120507
  4. REMICADE [Suspect]
     Indication: RHEUMATOID ARTHRITIS
     Route: 042
     Dates: end: 201207
  5. REMICADE [Suspect]
     Indication: RHEUMATOID ARTHRITIS
     Route: 042
     Dates: start: 20081218
  6. REMICADE [Suspect]
     Indication: RHEUMATOID ARTHRITIS
     Route: 042
     Dates: start: 20120507
  7. METHOTREXATE [Concomitant]
     Route: 065
  8. ASACOL [Concomitant]
     Indication: COLITIS
     Route: 048
  9. ASA [Concomitant]
     Indication: PROPHYLAXIS
     Route: 048
  10. METOPROLOL [Concomitant]
     Indication: HYPERTENSION
     Route: 065
  11. BONIVA [Concomitant]
     Indication: OSTEOPOROSIS
     Route: 042

REACTIONS (7)
  - Uveitis [Unknown]
  - Arteriosclerosis [Unknown]
  - Blindness unilateral [Recovering/Resolving]
  - Retinitis viral [Recovering/Resolving]
  - Pulmonary granuloma [Unknown]
  - Mitral valve incompetence [Unknown]
  - Ischaemia [Unknown]
